FAERS Safety Report 23836257 (Version 9)
Quarter: 2024Q3

REPORT INFORMATION
  Report Type: Spontaneous
  Country: US (occurrence: US)
  Receive Date: 20240509
  Receipt Date: 20240716
  Transmission Date: 20241017
  Serious: Yes (Hospitalization, Other)
  Sender: PFIZER
  Company Number: US-PFIZER INC-202400103020

PATIENT
  Age: 59 Year
  Sex: Female
  Weight: 67.59 kg

DRUGS (1)
  1. XELJANZ [Suspect]
     Active Substance: TOFACITINIB CITRATE
     Indication: Rheumatoid arthritis
     Dosage: 5 MG, 2X/DAY
     Route: 048
     Dates: end: 20240531

REACTIONS (6)
  - Left ventricular hypertrophy [Unknown]
  - Wrist fracture [Recovering/Resolving]
  - Withdrawal syndrome [Unknown]
  - Pain [Unknown]
  - Throat irritation [Recovering/Resolving]
  - Oedema peripheral [Recovering/Resolving]

NARRATIVE: CASE EVENT DATE: 20190101
